FAERS Safety Report 19138131 (Version 1)
Quarter: 2021Q2

REPORT INFORMATION
  Report Type: Spontaneous
  Country: US (occurrence: US)
  Receive Date: 20210415
  Receipt Date: 20210415
  Transmission Date: 20210717
  Serious: Yes (Other)
  Sender: FDA-Public Use
  Company Number: US-HIKMA PHARMACEUTICALS USA INC.-US-H14001-21-01733

PATIENT
  Age: 23 Year
  Sex: Female

DRUGS (4)
  1. CISPLATIN. [Suspect]
     Active Substance: CISPLATIN
     Indication: PANCREATOBLASTOMA
     Dosage: UNKNOWN
     Route: 065
  2. DOXORUBICIN [Suspect]
     Active Substance: DOXORUBICIN
     Indication: PANCREATOBLASTOMA
     Dosage: UNKNOWN
     Route: 065
  3. CEFAZOLIN [Suspect]
     Active Substance: CEFAZOLIN
     Indication: STAPHYLOCOCCAL INFECTION
     Dosage: UNKNOWN
     Route: 065
  4. ETOPOSIDE. [Suspect]
     Active Substance: ETOPOSIDE
     Indication: PANCREATOBLASTOMA
     Dosage: UNKNOWN
     Route: 065

REACTIONS (8)
  - Syncope [Unknown]
  - Abdominal pain [Unknown]
  - Tinnitus [Unknown]
  - Maternal exposure during pregnancy [Recovered/Resolved with Sequelae]
  - Nausea [Unknown]
  - Hypotension [Unknown]
  - Tension headache [Unknown]
  - Cardiac murmur [Unknown]
